FAERS Safety Report 12196721 (Version 3)
Quarter: 2016Q2

REPORT INFORMATION
  Report Type: Spontaneous
  Country: US (occurrence: US)
  Receive Date: 20160321
  Receipt Date: 20160615
  Transmission Date: 20160815
  Serious: Yes (Other)
  Sender: FDA-Public Use
  Company Number: US-BAYER-2016-053818

PATIENT
  Age: 30 Year
  Sex: Female
  Weight: 100.68 kg

DRUGS (1)
  1. SKYLA [Suspect]
     Active Substance: LEVONORGESTREL
     Indication: CONTRACEPTION
     Dosage: 14 MCG/24HR, CONT
     Route: 015
     Dates: start: 20140715, end: 20160224

REACTIONS (5)
  - Drug ineffective [None]
  - Haemorrhage in pregnancy [None]
  - Medical device pain [None]
  - Pregnancy with contraceptive device [Not Recovered/Not Resolved]
  - Contraindicated device used [None]

NARRATIVE: CASE EVENT DATE: 201601
